FAERS Safety Report 25608368 (Version 1)
Quarter: 2025Q3

REPORT INFORMATION
  Report Type: Spontaneous
  Country: EU (occurrence: EU)
  Receive Date: 20250726
  Receipt Date: 20250726
  Transmission Date: 20251020
  Serious: Yes (Disabling)
  Sender: ORGANON
  Company Number: None

PATIENT
  Age: 26 Year
  Sex: Male
  Weight: 80 kg

DRUGS (2)
  1. FINASTERIDE [Suspect]
     Active Substance: FINASTERIDE
     Indication: Alopecia
     Route: 048
     Dates: start: 20211228, end: 20211231
  2. FINASTERIDE [Suspect]
     Active Substance: FINASTERIDE
     Route: 048
     Dates: start: 20220104, end: 20220105

REACTIONS (7)
  - Brain fog [Not Recovered/Not Resolved]
  - Disturbance in attention [Not Recovered/Not Resolved]
  - Gynaecomastia [Recovering/Resolving]
  - Panic attack [Not Recovered/Not Resolved]
  - Prolactin-producing pituitary tumour [Unknown]
  - Depressed mood [Not Recovered/Not Resolved]
  - Suicidal ideation [Not Recovered/Not Resolved]
